FAERS Safety Report 19801003 (Version 1)
Quarter: 2021Q3

REPORT INFORMATION
  Report Type: Spontaneous
  Country: US (occurrence: US)
  Receive Date: 20210907
  Receipt Date: 20210907
  Transmission Date: 20211014
  Serious: Yes (Other)
  Sender: FDA-Public Use
  Company Number: US-PURDUE-USA-2020-0206406

PATIENT
  Sex: Male

DRUGS (12)
  1. OXYCONTIN [Suspect]
     Active Substance: OXYCODONE HYDROCHLORIDE
     Indication: INJURY
     Dosage: UNKNOWN
     Route: 048
  2. OXYCONTIN [Suspect]
     Active Substance: OXYCODONE HYDROCHLORIDE
     Indication: TOOTH INJURY
  3. HYSINGLA ER [Suspect]
     Active Substance: HYDROCODONE BITARTRATE
     Indication: INJURY
     Dosage: UNKNOWN
     Route: 048
  4. HYSINGLA ER [Suspect]
     Active Substance: HYDROCODONE BITARTRATE
     Indication: TOOTH INJURY
  5. HYDROCODONE BITARTRATE AND ACETAMINOPHEN [Suspect]
     Active Substance: ACETAMINOPHEN\HYDROCODONE BITARTRATE
     Indication: TOOTH INJURY
  6. HYDROCODONE BITARTRATE AND ACETAMINOPHEN [Suspect]
     Active Substance: ACETAMINOPHEN\HYDROCODONE BITARTRATE
     Indication: INJURY
     Dosage: UNKNOWN
     Route: 048
  7. MS IR [Suspect]
     Active Substance: MORPHINE SULFATE
     Indication: INJURY
     Dosage: UNKNOWN
     Route: 048
  8. MS IR [Suspect]
     Active Substance: MORPHINE SULFATE
     Indication: TOOTH INJURY
  9. HYDROMORPHONE HCL ORAL SOLUTION (RHODES) [Suspect]
     Active Substance: HYDROMORPHONE HYDROCHLORIDE
     Indication: INJURY
     Dosage: UNKNOWN
     Route: 048
  10. OXYFAST [Suspect]
     Active Substance: OXYCODONE
     Indication: TOOTH INJURY
  11. OXYFAST [Suspect]
     Active Substance: OXYCODONE
     Indication: INJURY
     Dosage: UNKNOWN
     Route: 048
  12. HYDROMORPHONE HCL ORAL SOLUTION (RHODES) [Suspect]
     Active Substance: HYDROMORPHONE HYDROCHLORIDE
     Indication: TOOTH INJURY

REACTIONS (12)
  - General physical health deterioration [Unknown]
  - Depression [Unknown]
  - Drug withdrawal syndrome [Unknown]
  - Disturbance in attention [Unknown]
  - Limb injury [Unknown]
  - Mental impairment [Unknown]
  - Pain [Unknown]
  - Anxiety [Unknown]
  - Suicidal ideation [Unknown]
  - Overdose [Unknown]
  - Drug dependence [Unknown]
  - Emotional distress [Unknown]
